FAERS Safety Report 5097257-3 (Version None)
Quarter: 2006Q3

REPORT INFORMATION
  Report Type: 
  Country: None (occurrence: None)
  Receive Date: 20060901
  Receipt Date: 20060822
  Transmission Date: 20061208
  Serious: Yes (Other)
  Sender: FDA-Public Use
  Company Number: LTI2006A00093

PATIENT
  Age: 43 Year
  Sex: Female

DRUGS (6)
  1. ACTOS [Suspect]
     Indication: DIABETES MELLITUS NON-INSULIN-DEPENDENT
     Dosage: 30 MG (30 MG, 1 IN 1 D) ORAL
     Route: 048
     Dates: start: 20040928, end: 20060302
  2. ACTOS [Suspect]
     Indication: MACULAR OEDEMA
     Dosage: 30 MG (30 MG, 1 IN 1 D) ORAL
     Route: 048
     Dates: start: 20040928, end: 20060302
  3. ACTOS [Suspect]
     Indication: DIABETES MELLITUS NON-INSULIN-DEPENDENT
     Dosage: 15 MG (15 MG, 1 IN 1 D) ORAL
     Route: 048
     Dates: start: 20060124, end: 20060302
  4. ACTOS [Suspect]
     Indication: MACULAR OEDEMA
     Dosage: 15 MG (15 MG, 1 IN 1 D) ORAL
     Route: 048
     Dates: start: 20060124, end: 20060302
  5. DIAMICRON (GLICLAZIDE) [Concomitant]
  6. GLUCOPHAGE [Concomitant]

REACTIONS (1)
  - MACULAR OEDEMA [None]
